FAERS Safety Report 10745689 (Version 1)
Quarter: 2015Q1

REPORT INFORMATION
  Report Type: Spontaneous
  Country: US (occurrence: US)
  Receive Date: 20150128
  Receipt Date: 20150128
  Transmission Date: 20150721
  Serious: Yes (Other)
  Sender: FDA-Public Use
  Company Number: US-BAYER-2015-007563

PATIENT
  Age: 84 Year
  Sex: Male
  Weight: 79 kg

DRUGS (6)
  1. LISINOPRIL. [Concomitant]
     Active Substance: LISINOPRIL
     Dosage: 20 MG, QD
  2. AZO [Suspect]
     Active Substance: PHENAZOPYRIDINE HYDROCHLORIDE
     Indication: URINARY TRACT INFECTION
     Dosage: 2 DF, QD
     Dates: start: 20141129, end: 20141129
  3. CIPRO [Suspect]
     Active Substance: CIPROFLOXACIN HYDROCHLORIDE
     Indication: URINARY TRACT INFECTION
  4. HYDROCHLOROTHIAZIDE. [Concomitant]
     Active Substance: HYDROCHLOROTHIAZIDE
     Dosage: 25 MG, QD
  5. METFORMIN [Concomitant]
     Active Substance: METFORMIN HYDROCHLORIDE
     Dosage: 500 MG, QD
  6. SIMVASTATIN. [Concomitant]
     Active Substance: SIMVASTATIN
     Dosage: 40 MG, QD

REACTIONS (14)
  - Nephrolithiasis [Not Recovered/Not Resolved]
  - Pyrexia [None]
  - Malaise [None]
  - Pleural effusion [Not Recovered/Not Resolved]
  - Dyspnoea [None]
  - Chromaturia [None]
  - Asthenia [None]
  - Systemic inflammatory response syndrome [Not Recovered/Not Resolved]
  - Chills [None]
  - Malaise [Not Recovered/Not Resolved]
  - Blood lactic acid increased [Not Recovered/Not Resolved]
  - Dehydration [Not Recovered/Not Resolved]
  - Cystitis [None]
  - Night sweats [None]

NARRATIVE: CASE EVENT DATE: 20141129
